FAERS Safety Report 18868453 (Version 2)
Quarter: 2021Q1

REPORT INFORMATION
  Report Type: Spontaneous
  Country: US (occurrence: US)
  Receive Date: 20210209
  Receipt Date: 20210325
  Transmission Date: 20210420
  Serious: Yes (Other)
  Sender: FDA-Public Use
  Company Number: US-KALA PHARAMACEUTICALS-2021KLA00015

PATIENT
  Age: 69 Year
  Sex: Female
  Weight: 57.6 kg

DRUGS (4)
  1. CALCIUM [Concomitant]
     Active Substance: CALCIUM
  2. VITAMIN D [Concomitant]
     Active Substance: VITAMIN D NOS
  3. UNSPECIFED SUPPLEMENTS [Concomitant]
     Dosage: UNK DROP
  4. INVELTYS [Suspect]
     Active Substance: LOTEPREDNOL ETABONATE
     Indication: CHALAZION
     Dosage: 1 DROP, 2X/DAY IN THE LEFT EYE IN THE MORNING AND IN THE EVENING
     Route: 047
     Dates: start: 202004, end: 20200412

REACTIONS (11)
  - Vision blurred [Not Recovered/Not Resolved]
  - Cataract nuclear [Not Recovered/Not Resolved]
  - Product contamination [Recovered/Resolved]
  - Eye discharge [Unknown]
  - Astigmatism [Not Recovered/Not Resolved]
  - Visual impairment [Not Recovered/Not Resolved]
  - Dry eye [Not Recovered/Not Resolved]
  - Off label use [Recovered/Resolved]
  - Diplopia [Not Recovered/Not Resolved]
  - Corneal warpage [Not Recovered/Not Resolved]
  - Visual acuity tests abnormal [Not Recovered/Not Resolved]

NARRATIVE: CASE EVENT DATE: 202004
